FAERS Safety Report 9382058 (Version 2)
Quarter: 2014Q1

REPORT INFORMATION
  Report Type: Spontaneous
  Country: US (occurrence: US)
  Receive Date: 20130703
  Receipt Date: 20140123
  Transmission Date: 20141002
  Serious: No
  Sender: FDA-Public Use
  Company Number: US-009507513-1307USA000833

PATIENT
  Age: 13 Year
  Sex: 0
  Weight: 49.43 kg

DRUGS (1)
  1. NEXPLANON [Suspect]
     Dosage: UNK
     Route: 059
     Dates: start: 20130628

REACTIONS (3)
  - Device difficult to use [Recovered/Resolved]
  - Product quality issue [Unknown]
  - No adverse event [Unknown]
